FAERS Safety Report 24106549 (Version 2)
Quarter: 2024Q3

REPORT INFORMATION
  Report Type: Spontaneous
  Country: US (occurrence: US)
  Receive Date: 20240717
  Receipt Date: 20240813
  Transmission Date: 20241016
  Serious: No
  Sender: MYLAN
  Company Number: US-MYLANLABS-2024M1064671

PATIENT
  Sex: Female

DRUGS (1)
  1. TYRVAYA [Suspect]
     Active Substance: VARENICLINE TARTRATE
     Indication: Dry eye
     Dosage: UNK
     Route: 045

REACTIONS (2)
  - Sneezing [Unknown]
  - Intentional product misuse [Unknown]
